FAERS Safety Report 14997244 (Version 2)
Quarter: 2018Q2

REPORT INFORMATION
  Report Type: Report from Study
  Country: CN (occurrence: CN)
  Receive Date: 20180611
  Receipt Date: 20180614
  Transmission Date: 20180711
  Serious: Yes (Hospitalization)
  Sender: FDA-Public Use
  Company Number: CN-AMGEN-CHNCT2018055777

PATIENT
  Age: 39 Year
  Sex: Male
  Weight: 60 kg

DRUGS (22)
  1. AMBROXOL HYDROCHLORIDE [Concomitant]
     Active Substance: AMBROXOL HYDROCHLORIDE
     Dosage: 30 MG, UNK
     Route: 042
     Dates: start: 20180201, end: 20180207
  2. HUMAN ALBUMIN [Concomitant]
     Active Substance: ALBUMIN HUMAN
     Dosage: 5 G, UNK
     Route: 042
     Dates: start: 20180201, end: 20180207
  3. MECOBALAMIN [Concomitant]
     Active Substance: METHYLCOBALAMIN
     Dosage: 500-1500 MUG, UNK
     Route: 042
     Dates: start: 20180126, end: 20180211
  4. BUPRENORPHINE. [Concomitant]
     Active Substance: BUPRENORPHINE
     Dosage: 5 MG, UNK
     Route: 062
     Dates: start: 20180127, end: 20180127
  5. GLUCOSE W/POTASSIUM/SODIUM [Concomitant]
     Dosage: 500 ML, UNK
     Route: 042
     Dates: start: 20180201, end: 20180207
  6. OMEPRAZOLE. [Concomitant]
     Active Substance: OMEPRAZOLE
     Dosage: 40 MG, UNK
     Route: 042
     Dates: start: 20180206, end: 20180207
  7. ESOMEPRAZOLE SODIUM. [Concomitant]
     Active Substance: ESOMEPRAZOLE SODIUM
     Dosage: 40 MG, UNK
     Route: 042
     Dates: start: 20180122, end: 20180417
  8. CEFTRIAXONE SODIUM. [Concomitant]
     Active Substance: CEFTRIAXONE SODIUM
     Dosage: 2 G, UNK
     Route: 042
     Dates: start: 20180126, end: 20180209
  9. PARACETAMOL W/PSEUDOEPHEDRINE HYDROCHLORIDE [Concomitant]
     Dosage: 1 UNK, UNK
     Route: 048
     Dates: start: 20180126, end: 20180128
  10. ZOLEDRONIC ACID [Concomitant]
     Active Substance: ZOLEDRONIC ACID
     Indication: BONE DISORDER
     Dosage: 4 MG, UNK
     Route: 042
     Dates: start: 20180227, end: 20180424
  11. GLUCOSE [Concomitant]
     Active Substance: DEXTROSE
     Dosage: 250 ML, UNK
     Route: 042
     Dates: start: 20180227, end: 20180228
  12. COMPOUND PARACETAMOL [Concomitant]
     Dosage: 1 UNK, UNK
     Route: 048
     Dates: start: 20180122
  13. DEXTROMETHORPHAN HYDROBROMIDE. [Concomitant]
     Active Substance: DEXTROMETHORPHAN HYDROBROMIDE
     Dosage: 1 UNK, UNK
     Route: 048
     Dates: start: 20180126, end: 20180128
  14. FLURBIPROFEN AXETIL [Concomitant]
     Active Substance: FLURBIPROFEN AXETIL
     Dosage: 100 MG, UNK
     Route: 042
     Dates: start: 20180201, end: 20180206
  15. ALPROSTADIL. [Concomitant]
     Active Substance: ALPROSTADIL
     Dosage: 10 MUG, UNK
     Route: 042
     Dates: start: 20180207, end: 20180210
  16. CARFILZOMIB [Suspect]
     Active Substance: CARFILZOMIB
     Indication: PLASMA CELL MYELOMA
     Dosage: 46 MG, PER CHEMO REGIM
     Route: 042
     Dates: start: 20171016, end: 20180417
  17. DEXAMETHASONE. [Suspect]
     Active Substance: DEXAMETHASONE
     Indication: PLASMA CELL MYELOMA
     Dosage: 20 MG, PER CHEMO REGIM
     Route: 042
     Dates: start: 20171016, end: 20180417
  18. CALCIUM CARBONATE/VITAMIN D3 [Concomitant]
     Active Substance: CALCIUM CARBONATE\CHOLECALCIFEROL
     Dosage: 600 MG, UNK
     Route: 048
     Dates: start: 20180211
  19. ACICLOVIR [Concomitant]
     Active Substance: ACYCLOVIR
     Dosage: 200 MG, UNK
     Route: 048
     Dates: start: 20171016
  20. CELECOXIB. [Concomitant]
     Active Substance: CELECOXIB
     Dosage: 200 MG, UNK
     Route: 048
     Dates: start: 20180126, end: 20180128
  21. BUDESONIDE. [Concomitant]
     Active Substance: BUDESONIDE
     Dosage: 2 MG, UNK
     Dates: start: 20180126, end: 20180207
  22. TRAMADOL HYDROCHLORIDE. [Concomitant]
     Active Substance: TRAMADOL HYDROCHLORIDE
     Dosage: 100 MG, UNK
     Route: 030
     Dates: start: 20180131, end: 20180131

REACTIONS (1)
  - Bone pain [Recovered/Resolved]

NARRATIVE: CASE EVENT DATE: 20180423
